FAERS Safety Report 7768048-7 (Version None)
Quarter: 2011Q3

REPORT INFORMATION
  Report Type: 
  Country: None (occurrence: None)
  Receive Date: 20110922
  Receipt Date: 20110915
  Transmission Date: 20111222
  Serious: Yes (Other)
  Sender: FDA-Public Use
  Company Number: BR-SANOFI-AVENTIS-2011SA060514

PATIENT
  Age: 61 Year
  Sex: Female
  Weight: 78 kg

DRUGS (8)
  1. VASTAREL ^BIOPHARMA^ [Concomitant]
  2. SIMVASTATIN [Concomitant]
     Route: 048
  3. APIDRA [Suspect]
     Indication: TYPE 1 DIABETES MELLITUS
     Route: 058
     Dates: start: 20060101
  4. SUSTRATE [Concomitant]
  5. OMEPRAZOLE [Concomitant]
  6. ALL OTHER THERAPEUTIC PRODUCTS [Concomitant]
     Route: 048
  7. AMITRIPTYLINE HYDROCHLORIDE [Concomitant]
  8. RANITIDINE [Concomitant]

REACTIONS (5)
  - INJECTION SITE PAIN [None]
  - INJECTION SITE NODULE [None]
  - EYE HAEMORRHAGE [None]
  - INJECTION SITE HAEMATOMA [None]
  - VISION BLURRED [None]
